FAERS Safety Report 11129799 (Version 2)
Quarter: 2015Q2

REPORT INFORMATION
  Report Type: Report from Study
  Country: CZ (occurrence: CZ)
  Receive Date: 20150521
  Receipt Date: 20150529
  Transmission Date: 20150821
  Serious: Yes (Hospitalization, Other)
  Sender: FDA-Public Use
  Company Number: CZ-GILEAD-2015-0153914

PATIENT
  Age: 56 Year
  Sex: Male
  Weight: 79.4 kg

DRUGS (12)
  1. ALLOPURINOL. [Concomitant]
     Active Substance: ALLOPURINOL
  2. FURON                              /00032601/ [Concomitant]
     Active Substance: FUROSEMIDE
     Indication: FLUID RETENTION
     Route: 048
     Dates: start: 20150514, end: 20150514
  3. PARALEN [Concomitant]
     Active Substance: ACETAMINOPHEN
     Route: 048
     Dates: start: 20150514
  4. RITUXIMAB [Suspect]
     Active Substance: RITUXIMAB
     Dosage: 726 MG, Q1WK
     Route: 042
     Dates: start: 20150514, end: 20150514
  5. STILNOX [Concomitant]
     Active Substance: ZOLPIDEM TARTRATE
     Route: 048
     Dates: start: 20150514, end: 20150514
  6. SOLU-MEDROL [Concomitant]
     Active Substance: METHYLPREDNISOLONE SODIUM SUCCINATE
     Route: 042
     Dates: start: 20150514
  7. IDELALISIB [Suspect]
     Active Substance: IDELALISIB
     Dosage: 150 UNK, UNK
     Route: 048
     Dates: start: 20150519
  8. RITUXIMAB [Suspect]
     Active Substance: RITUXIMAB
     Indication: CHRONIC LYMPHOCYTIC LEUKAEMIA
     Dosage: 375 MG/M2, UNK
     Route: 042
     Dates: start: 20150514
  9. ONDANSETRON [Concomitant]
     Active Substance: ONDANSETRON
     Route: 042
     Dates: start: 20150514
  10. IDELALISIB [Suspect]
     Active Substance: IDELALISIB
     Indication: CHRONIC LYMPHOCYTIC LEUKAEMIA
     Dosage: 150 MG, UNK
     Route: 048
     Dates: start: 20150514
  11. SALINE [Concomitant]
     Active Substance: SODIUM CHLORIDE
     Route: 042
     Dates: start: 20150513, end: 20150519
  12. DITHIADEN [Concomitant]
     Active Substance: BISULEPIN
     Route: 042
     Dates: start: 20150514

REACTIONS (1)
  - Tumour lysis syndrome [Recovered/Resolved]

NARRATIVE: CASE EVENT DATE: 20150515
